FAERS Safety Report 9785450 (Version 1)
Quarter: 2013Q4

REPORT INFORMATION
  Report Type: Spontaneous
  Country: FR (occurrence: None)
  Receive Date: 20131224
  Receipt Date: 20131224
  Transmission Date: 20140711
  Serious: Yes (Hospitalization)
  Sender: FDA-Public Use
  Company Number: 2077022

PATIENT
  Age: 70 Year
  Sex: Male

DRUGS (15)
  1. CARBOPLATIN [Suspect]
     Indication: CHEMOTHERAPY
     Route: 042
     Dates: start: 20130726, end: 20130726
  2. ALIMTA [Suspect]
     Indication: CHEMOTHERAPY
     Route: 042
     Dates: start: 20130726, end: 20130726
  3. AMAREL [Concomitant]
  4. EUPANTOL [Concomitant]
  5. SPECIAFOLDINE [Concomitant]
  6. INNOHEP [Concomitant]
  7. CORDARONE [Concomitant]
  8. TAHOR [Concomitant]
  9. DIGOXINE NATIVELLE [Concomitant]
  10. RENITEC [Concomitant]
  11. LASILIX [Concomitant]
  12. LEXOMIL [Concomitant]
  13. SOLUPRED [Concomitant]
  14. MOTILIUM [Concomitant]
  15. GAVISCON [Concomitant]

REACTIONS (11)
  - Renal failure [None]
  - Asthenia [None]
  - Nausea [None]
  - Pancytopenia [None]
  - Arrhythmia [None]
  - Overdose [None]
  - Malnutrition [None]
  - Hypoglycaemia [None]
  - Hypocalcaemia [None]
  - Epilepsy [None]
  - Hypomagnesaemia [None]
